FAERS Safety Report 15500767 (Version 2)
Quarter: 2018Q4

REPORT INFORMATION
  Report Type: Report from Study
  Country: US (occurrence: US)
  Receive Date: 20181015
  Receipt Date: 20181116
  Transmission Date: 20190205
  Serious: Yes (Other)
  Sender: FDA-Public Use
  Company Number: US-TEVA-2018-US-962340

PATIENT
  Age: 20 Year
  Sex: Male
  Weight: 86.26 kg

DRUGS (3)
  1. MELATONIN [Concomitant]
     Active Substance: MELATONIN
  2. MYORISAN [Suspect]
     Active Substance: ISOTRETINOIN
     Indication: ACNE
     Dosage: 80 MILLIGRAM DAILY;
     Route: 048
     Dates: end: 20180904
  3. CLARAVIS [Suspect]
     Active Substance: ISOTRETINOIN
     Route: 065

REACTIONS (3)
  - Mood altered [Not Recovered/Not Resolved]
  - Depression [Recovering/Resolving]
  - Suicidal ideation [Not Recovered/Not Resolved]

NARRATIVE: CASE EVENT DATE: 201808
